FAERS Safety Report 13054638 (Version 1)
Quarter: 2016Q4

REPORT INFORMATION
  Report Type: Spontaneous
  Country: US (occurrence: US)
  Receive Date: 20161222
  Receipt Date: 20161222
  Transmission Date: 20170207
  Serious: No
  Sender: FDA-Public Use
  Company Number: None

PATIENT
  Age: 43 Year
  Sex: Female
  Weight: 60.75 kg

DRUGS (2)
  1. LEXAPRO [Concomitant]
     Active Substance: ESCITALOPRAM OXALATE
  2. LEVOFLOXACIN NOT LISTED DISPENSED BY CVS [Suspect]
     Active Substance: LEVOFLOXACIN
     Indication: SINUSITIS
     Dosage: ?          QUANTITY:5 TABLET(S);?
     Route: 048

REACTIONS (7)
  - Headache [None]
  - Panic attack [None]
  - Apparent death [None]
  - Insomnia [None]
  - Tachyphrenia [None]
  - Paraesthesia [None]
  - Palpitations [None]

NARRATIVE: CASE EVENT DATE: 20161221
